FAERS Safety Report 25128976 (Version 1)
Quarter: 2025Q1

REPORT INFORMATION
  Report Type: Spontaneous
  Country: PL (occurrence: PL)
  Receive Date: 20250327
  Receipt Date: 20250327
  Transmission Date: 20250409
  Serious: Yes (Hospitalization, Other)
  Sender: AUROBINDO
  Company Number: PL-URPL-DML-MLP.4401.1.364.2024

PATIENT
  Age: 14 Year
  Sex: Female
  Weight: 59.8 kg

DRUGS (9)
  1. ACETAMINOPHEN [Suspect]
     Active Substance: ACETAMINOPHEN
     Indication: Toxicity to various agents
     Route: 048
     Dates: start: 20240929
  2. ACETAMINOPHEN [Suspect]
     Active Substance: ACETAMINOPHEN
     Indication: Toxicity to various agents
  3. ACETAMINOPHEN [Suspect]
     Active Substance: ACETAMINOPHEN
     Indication: Intentional self-injury
  4. ASPIRIN [Suspect]
     Active Substance: ASPIRIN
     Indication: Toxicity to various agents
     Route: 048
     Dates: start: 20240929
  5. ASPIRIN [Suspect]
     Active Substance: ASPIRIN
     Indication: Toxicity to various agents
  6. ASPIRIN [Suspect]
     Active Substance: ASPIRIN
     Indication: Intentional self-injury
  7. IBUPROFEN [Suspect]
     Active Substance: IBUPROFEN
     Indication: Toxicity to various agents
     Route: 048
     Dates: start: 20240929
  8. IBUPROFEN [Suspect]
     Active Substance: IBUPROFEN
     Indication: Toxicity to various agents
  9. IBUPROFEN [Suspect]
     Active Substance: IBUPROFEN
     Indication: Intentional self-injury

REACTIONS (6)
  - Intentional self-injury [Unknown]
  - General physical condition normal [Unknown]
  - Laboratory test normal [Unknown]
  - Analgesic drug level therapeutic [Unknown]
  - Toxicity to various agents [Unknown]
  - Intentional overdose [Unknown]

NARRATIVE: CASE EVENT DATE: 20240929
